FAERS Safety Report 4486673-6 (Version None)
Quarter: 2004Q4

REPORT INFORMATION
  Report Type: 
  Country: None (occurrence: None)
  Receive Date: 20041021
  Receipt Date: 20041005
  Transmission Date: 20050328
  Serious: Yes (Death, Hospitalization)
  Sender: FDA-Public Use
  Company Number: 2004230926JP

PATIENT
  Age: 75 Year
  Sex: Female

DRUGS (11)
  1. CAMPTOSAR [Suspect]
     Indication: NON-SMALL CELL LUNG CANCER
     Dosage: 40 MG/BODY, DAY 1, IV DRIP; 60 MG/BODY, DAY 8, IV DRIP
     Route: 041
     Dates: start: 20040708, end: 20040708
  2. CAMPTOSAR [Suspect]
     Indication: NON-SMALL CELL LUNG CANCER
     Dosage: 40 MG/BODY, DAY 1, IV DRIP; 60 MG/BODY, DAY 8, IV DRIP
     Route: 041
     Dates: start: 20040715, end: 20040715
  3. GEMZAR [Suspect]
     Indication: NON-SMALL CELL LUNG CANCER
     Dosage: 1000 MG, 8 DAYS, CYCLIC, IV DRIP
     Route: 041
     Dates: start: 20040708, end: 20040715
  4. LOPEMIN [Concomitant]
  5. BETAMETHASONE SODIUM PHOSPHATE [Concomitant]
  6. ROXATIDINE ACETATE HCL [Concomitant]
  7. CEFEPIME HYDROCHLORIDE (CEFEPIME HYDROCHLORIDE) [Concomitant]
  8. FUROSEMIDE [Concomitant]
  9. DOPAMINE HCL [Concomitant]
  10. RINGER-LACTATE SOLUTION (CALCIUM CHLORIDE DIHYDRATE) [Concomitant]
  11. EPINEPHRINE [Concomitant]

REACTIONS (22)
  - ABDOMINAL DISTENSION [None]
  - ANOREXIA [None]
  - ASPARTATE AMINOTRANSFERASE INCREASED [None]
  - BLOOD CREATININE INCREASED [None]
  - BLOOD PRESSURE DECREASED [None]
  - BLOOD UREA INCREASED [None]
  - C-REACTIVE PROTEIN INCREASED [None]
  - CARDIAC ARREST [None]
  - DEHYDRATION [None]
  - DEPRESSED LEVEL OF CONSCIOUSNESS [None]
  - DIARRHOEA [None]
  - DRUG INEFFECTIVE [None]
  - GENERAL PHYSICAL HEALTH DETERIORATION [None]
  - MALAISE [None]
  - MYOCARDIAL INFARCTION [None]
  - NAUSEA [None]
  - NEUTROPENIA [None]
  - PO2 DECREASED [None]
  - PULMONARY INFARCTION [None]
  - THERAPY NON-RESPONDER [None]
  - THROMBOCYTOPENIA [None]
  - VOMITING [None]
